FAERS Safety Report 5904798-2 (Version None)
Quarter: 2008Q4

REPORT INFORMATION
  Report Type: 
  Country: None (occurrence: None)
  Receive Date: 20081001
  Receipt Date: 20080922
  Transmission Date: 20090506
  Serious: Yes (Disabling, Other)
  Sender: FDA-Public Use
  Company Number: US-MERCK-0806USA01840

PATIENT
  Age: 58 Year
  Sex: Female

DRUGS (4)
  1. FOSAMAX [Suspect]
     Indication: OSTEOPOROSIS
     Route: 048
     Dates: start: 20050101, end: 20051106
  2. FOSAMAX [Suspect]
     Route: 048
     Dates: start: 20061001, end: 20071001
  3. FOSAMAX [Suspect]
     Route: 048
     Dates: start: 20030101
  4. HORMONES (UNSPECIFIED) [Concomitant]
     Route: 065

REACTIONS (5)
  - ADVERSE EVENT [None]
  - BACK DISORDER [None]
  - MUSCULOSKELETAL DISORDER [None]
  - OSTEONECROSIS [None]
  - ROAD TRAFFIC ACCIDENT [None]
